FAERS Safety Report 8111275-X (Version None)
Quarter: 2012Q1

REPORT INFORMATION
  Report Type: 
  Country: None (occurrence: None)
  Receive Date: 20120203
  Receipt Date: 20110802
  Transmission Date: 20120608
  Serious: No
  Sender: FDA-Public Use
  Company Number: US-GLAXOSMITHKLINE-A0939400A

PATIENT
  Age: 43 Year
  Sex: Female

DRUGS (3)
  1. LAMOTRIGINE [Suspect]
     Indication: CONVULSION
     Route: 048
     Dates: start: 20101201
  2. MACROBID [Concomitant]
  3. METOPROLOL [Concomitant]

REACTIONS (4)
  - HEADACHE [None]
  - BLISTER [None]
  - RASH [None]
  - MUSCULOSKELETAL STIFFNESS [None]
